FAERS Safety Report 6372137-1 (Version None)
Quarter: 2009Q3

REPORT INFORMATION
  Report Type: 
  Country: None (occurrence: None)
  Receive Date: 20090917
  Receipt Date: 20090904
  Transmission Date: 20100115
  Serious: Yes (Life-Threatening, Hospitalization, Other)
  Sender: FDA-Public Use
  Company Number: ADR16332009

PATIENT
  Age: 23 Year
  Sex: Female

DRUGS (3)
  1. CITALOPRAM HYDROBROMIDE [Suspect]
     Indication: INTENTIONAL OVERDOSE
     Dosage: 220 MG (OVERDOSE)
     Route: 048
  2. LAMOTRIGINE [Suspect]
     Indication: INTENTIONAL OVERDOSE
     Dosage: 9.2 G (OVERDOSE)
     Route: 048
  3. CHLORPHENIRAMINE MALEATE [Concomitant]

REACTIONS (14)
  - AGITATION [None]
  - DEPRESSED LEVEL OF CONSCIOUSNESS [None]
  - DRUG INTERACTION [None]
  - ELECTROCARDIOGRAM QRS COMPLEX PROLONGED [None]
  - ELECTROCARDIOGRAM QT PROLONGED [None]
  - METABOLIC ACIDOSIS [None]
  - MULTIPLE DRUG OVERDOSE INTENTIONAL [None]
  - NYSTAGMUS [None]
  - OVERDOSE [None]
  - PYREXIA [None]
  - SINUS TACHYCARDIA [None]
  - TACHYPNOEA [None]
  - TREMOR [None]
  - VOMITING [None]
